FAERS Safety Report 11188551 (Version 2)
Quarter: 2015Q3

REPORT INFORMATION
  Report Type: Spontaneous
  Country: AT (occurrence: AT)
  Receive Date: 20150615
  Receipt Date: 20150716
  Transmission Date: 20151125
  Serious: Yes (Other)
  Sender: FDA-Public Use
  Company Number: AT-BEH-2015051608

PATIENT
  Age: 72 Year
  Sex: Female

DRUGS (1)
  1. VON WILLEBRAND FACTOR CONTAINING FACTOR VIII CONCENTRATES [Suspect]
     Active Substance: HUMAN COAGULATION FACTOR VIII/VON WILLEBRAND FACTOR COMPLEX
     Indication: VON WILLEBRAND^S DISEASE

REACTIONS (2)
  - Therapeutic response decreased [Recovered/Resolved]
  - Thrombocytopenia [Recovered/Resolved]
